FAERS Safety Report 5201863-2 (Version None)
Quarter: 2007Q1

REPORT INFORMATION
  Report Type: 
  Country: None (occurrence: None)
  Receive Date: 20070103
  Receipt Date: 20061219
  Transmission Date: 20070707
  Serious: Yes (Hospitalization)
  Sender: FDA-Public Use
  Company Number: TPG2006A00584

PATIENT
  Age: 67 Year
  Sex: Male

DRUGS (4)
  1. ACTOS [Suspect]
     Indication: DIABETES MELLITUS NON-INSULIN-DEPENDENT
     Dosage: 30 MG (30 MG, 1 IN 1 D) PER ORAL
     Route: 048
     Dates: start: 20051201
  2. TENORMIN [Concomitant]
  3. GLUCOPHAGE [Concomitant]
  4. ALLOPURINOL [Concomitant]

REACTIONS (14)
  - CERVICOBRACHIAL SYNDROME [None]
  - DENTAL CARIES [None]
  - DIABETIC MICROANGIOPATHY [None]
  - DIPLOPIA [None]
  - FATIGUE [None]
  - GLYCOSYLATED HAEMOGLOBIN INCREASED [None]
  - HEADACHE [None]
  - HYPERLIPIDAEMIA [None]
  - MICROANGIOPATHY [None]
  - NERVE INJURY [None]
  - OPTIC ISCHAEMIC NEUROPATHY [None]
  - PAPILLOEDEMA [None]
  - RASH [None]
  - SCOTOMA [None]
